FAERS Safety Report 7395083-3 (Version None)
Quarter: 2011Q2

REPORT INFORMATION
  Report Type: 
  Country: None (occurrence: None)
  Receive Date: 20110405
  Receipt Date: 20110331
  Transmission Date: 20111010
  Serious: Yes (Death, Hospitalization, Other)
  Sender: FDA-Public Use
  Company Number: BR-ABBOTT-11P-020-0715823-00

PATIENT
  Sex: Female

DRUGS (4)
  1. UNKNOWN CORTICOID [Suspect]
     Indication: PRODUCT USED FOR UNKNOWN INDICATION
     Dates: end: 20110301
  2. HUMIRA [Suspect]
     Indication: RHEUMATOID ARTHRITIS
     Dates: end: 20110301
  3. PREDNISONE [Suspect]
     Indication: PRODUCT USED FOR UNKNOWN INDICATION
     Dosage: 2 IN 1 DAY: 40MG AM/ 40 MG PM
     Dates: start: 20110101, end: 20110301
  4. METHOTREXATE [Concomitant]
     Indication: PRODUCT USED FOR UNKNOWN INDICATION
     Dates: end: 20110301

REACTIONS (12)
  - ABDOMINAL PAIN UPPER [None]
  - DEPRESSION [None]
  - ACUTE RESPIRATORY FAILURE [None]
  - GASTRIC DISORDER [None]
  - HYPOPHAGIA [None]
  - VASCULITIS [None]
  - ANGIOPATHY [None]
  - LUNG DISORDER [None]
  - MUSCULOSKELETAL DISORDER [None]
  - WEIGHT DECREASED [None]
  - PNEUMONIA [None]
  - PULSE ABSENT [None]
